FAERS Safety Report 19673690 (Version 1)
Quarter: 2021Q3

REPORT INFORMATION
  Report Type: Spontaneous
  Country: US (occurrence: US)
  Receive Date: 20210806
  Receipt Date: 20210806
  Transmission Date: 20211014
  Serious: Yes (Disabling)
  Sender: FDA-Public Use
  Company Number: None

PATIENT
  Age: 73 Year
  Sex: Male
  Weight: 85.5 kg

DRUGS (2)
  1. CREST GUM CARE [Suspect]
     Active Substance: CETYLPYRIDINIUM CHLORIDE
     Indication: GINGIVAL DISORDER
     Route: 048
     Dates: start: 20210801, end: 20210802
  2. COREG [Concomitant]
     Active Substance: CARVEDILOL

REACTIONS (3)
  - Oral pain [None]
  - Gingival swelling [None]
  - Gingival pain [None]

NARRATIVE: CASE EVENT DATE: 20210801
